FAERS Safety Report 25532753 (Version 1)
Quarter: 2025Q3

REPORT INFORMATION
  Report Type: Report from Study
  Country: US (occurrence: US)
  Receive Date: 20250709
  Receipt Date: 20250709
  Transmission Date: 20251021
  Serious: Yes (Hospitalization)
  Sender: ABBVIE
  Company Number: US-ABBVIE-6358669

PATIENT
  Sex: Male

DRUGS (1)
  1. IMBRUVICA [Suspect]
     Active Substance: IBRUTINIB
     Indication: Product used for unknown indication
     Route: 048

REACTIONS (8)
  - Electrocardiogram abnormal [Recovering/Resolving]
  - Headache [Unknown]
  - Tonsillitis [Recovering/Resolving]
  - Dysphagia [Unknown]
  - Nausea [Unknown]
  - Foreign body in throat [Unknown]
  - Gastrooesophageal reflux disease [Unknown]
  - Unevaluable event [Unknown]
